FAERS Safety Report 7028273-X (Version None)
Quarter: 2010Q4

REPORT INFORMATION
  Report Type: 
  Country: None (occurrence: None)
  Receive Date: 20101005
  Receipt Date: 20100929
  Transmission Date: 20110411
  Serious: Yes (Hospitalization)
  Sender: FDA-Public Use
  Company Number: FR-PFIZER INC-2010120677

PATIENT
  Age: 32 Year
  Sex: Female

DRUGS (13)
  1. SOLU-MEDROL [Suspect]
     Dosage: UNK
     Route: 042
     Dates: start: 20100820, end: 20100825
  2. INIPOMP [Suspect]
     Dosage: UNK
     Route: 042
     Dates: start: 20100818, end: 20100824
  3. LASIX [Suspect]
     Dosage: UNK
     Route: 042
     Dates: start: 20100820
  4. DIPRIVAN [Suspect]
     Dosage: UNK
     Route: 042
     Dates: start: 20100822, end: 20100823
  5. AUGMENTIN '125' [Suspect]
     Dosage: UNK
     Route: 042
     Dates: start: 20100818, end: 20100823
  6. CLAFORAN [Suspect]
     Dosage: UNK
     Route: 042
     Dates: start: 20100823, end: 20100825
  7. LOVENOX [Suspect]
     Dosage: UNK
     Route: 058
     Dates: start: 20100820, end: 20100826
  8. ORGARAN [Suspect]
     Dosage: UNK
     Route: 058
     Dates: start: 20100818, end: 20100820
  9. FENTANYL [Suspect]
     Dosage: UNK
     Route: 042
     Dates: start: 20100819, end: 20100822
  10. HYPNOVEL [Suspect]
     Dosage: UNK
     Route: 042
     Dates: start: 20100818, end: 20100822
  11. TRANXENE [Suspect]
     Dosage: UNK
     Dates: start: 20100822, end: 20100825
  12. NEXIUM [Concomitant]
  13. PERINDOPRIL ERBUMINE [Concomitant]

REACTIONS (5)
  - ALANINE AMINOTRANSFERASE INCREASED [None]
  - ASPARTATE AMINOTRANSFERASE INCREASED [None]
  - BLOOD AMYLASE INCREASED [None]
  - LIPASE INCREASED [None]
  - PANCREATITIS [None]
